FAERS Safety Report 6086519-9 (Version None)
Quarter: 2009Q1

REPORT INFORMATION
  Report Type: 
  Country: None (occurrence: None)
  Receive Date: 20090223
  Receipt Date: 20090219
  Transmission Date: 20090719
  Serious: Yes (Death)
  Sender: FDA-Public Use
  Company Number: US-JNJFOC-20090205180

PATIENT
  Sex: Female
  Weight: 90.72 kg

DRUGS (4)
  1. RISPERDAL CONSTA [Suspect]
     Indication: SCHIZOPHRENIA
     Route: 030
  2. RISPERDAL [Suspect]
     Indication: DRUG USE FOR UNKNOWN INDICATION
     Route: 048
  3. DEPAKOTE [Concomitant]
     Route: 048
  4. TRAZODONE HCL [Concomitant]
     Dosage: BEDTIME
     Route: 048

REACTIONS (2)
  - DEATH [None]
  - TREATMENT NONCOMPLIANCE [None]
